FAERS Safety Report 9967125 (Version 3)
Quarter: 2014Q2

REPORT INFORMATION
  Report Type: Spontaneous
  Country: BR (occurrence: BR)
  Receive Date: 20140305
  Receipt Date: 20140529
  Transmission Date: 20141212
  Serious: Yes (Hospitalization)
  Sender: FDA-Public Use
  Company Number: BR-ABBVIE-13P-020-1184905-00

PATIENT
  Sex: Female
  Weight: 63 kg

DRUGS (5)
  1. CREON [Suspect]
     Indication: PANCREATITIS ACUTE
  2. CREON [Suspect]
     Dosage: DAILY DOSE: 75000IU; DURING MEAL TIME: 1CAPSULE-06:00AM,1CAPSULE-12:00PM,1CAPSULE-6:00PM
     Route: 050
  3. ALL OTHER THERAPEUTIC PRODUCTS [Concomitant]
     Indication: PRODUCT USED FOR UNKNOWN INDICATION
  4. SOMALGIN [Concomitant]
     Indication: PRODUCT USED FOR UNKNOWN INDICATION
  5. HIDANTAL [Concomitant]
     Indication: PRODUCT USED FOR UNKNOWN INDICATION

REACTIONS (6)
  - Lung disorder [Unknown]
  - Pancreatitis [Unknown]
  - Dysphagia [Unknown]
  - Wrong technique in drug usage process [Unknown]
  - Product solubility abnormal [Unknown]
  - Bedridden [Unknown]
